FAERS Safety Report 21756037 (Version 1)
Quarter: 2022Q4

REPORT INFORMATION
  Report Type: Spontaneous
  Country: US (occurrence: None)
  Receive Date: 20221219
  Receipt Date: 20221219
  Transmission Date: 20230113
  Serious: Yes (Hospitalization)
  Sender: FDA-Public Use
  Company Number: None

PATIENT
  Sex: Male

DRUGS (2)
  1. DEVICE [Suspect]
     Active Substance: DEVICE
  2. VELETRI [Suspect]
     Active Substance: EPOPROSTENOL
     Indication: Pulmonary arterial hypertension
     Dosage: OTHER QUANTITY : 9.05NG/KG/MIN;?FREQUENCY : AS DIRECTED;?
     Route: 042
     Dates: start: 20210930

REACTIONS (1)
  - Recalled product administered [None]
